FAERS Safety Report 7441905-7 (Version None)
Quarter: 2011Q2

REPORT INFORMATION
  Report Type: 
  Country: None (occurrence: None)
  Receive Date: 20110426
  Receipt Date: 20110426
  Transmission Date: 20111010
  Serious: No
  Sender: FDA-Public Use
  Company Number: None

PATIENT
  Age: 39 Year
  Sex: Female
  Weight: 81.6475 kg

DRUGS (2)
  1. CYMBALTA [Suspect]
     Indication: ANXIETY
     Dosage: 60MG DAILY PO
     Route: 048
     Dates: start: 20090101, end: 20100601
  2. CYMBALTA [Suspect]
     Indication: DEPRESSION
     Dosage: 60MG DAILY PO
     Route: 048
     Dates: start: 20090101, end: 20100601

REACTIONS (3)
  - SENSORY DISTURBANCE [None]
  - PAIN IN EXTREMITY [None]
  - NEUROPATHY PERIPHERAL [None]
